FAERS Safety Report 23376728 (Version 1)
Quarter: 2024Q1

REPORT INFORMATION
  Report Type: Spontaneous
  Country: US (occurrence: US)
  Receive Date: 20240108
  Receipt Date: 20240108
  Transmission Date: 20240410
  Serious: No
  Sender: FDA-Public Use
  Company Number: US-OPELLA-2024OHG000097

PATIENT
  Age: 74 Year
  Sex: Female

DRUGS (1)
  1. GOLD BOND ULTIMATE PSORIASIS RELIEF CREAM [Suspect]
     Active Substance: SALICYLIC ACID
     Indication: Pruritus

REACTIONS (1)
  - Insomnia [Unknown]
